FAERS Safety Report 9330994 (Version 1)
Quarter: 2013Q2

REPORT INFORMATION
  Report Type: Spontaneous
  Country: US (occurrence: None)
  Receive Date: 20130531
  Receipt Date: 20130531
  Transmission Date: 20140414
  Serious: Yes (Death)
  Sender: FDA-Public Use
  Company Number: POI0770201300001

PATIENT
  Age: 50 Year
  Sex: Male

DRUGS (6)
  1. ZIPSOR [Suspect]
     Indication: MUSCULOSKELETAL PAIN
     Route: 048
     Dates: start: 20130521, end: 20130521
  2. LORTAB [Concomitant]
  3. BENICAR HCT [Concomitant]
  4. LOPRESSOR [Concomitant]
  5. NEURONTIN [Concomitant]
  6. TRAMADOL [Concomitant]

REACTIONS (7)
  - Feeling abnormal [None]
  - Pyrexia [None]
  - Thermal burn [None]
  - Convulsion [None]
  - Lip swelling [None]
  - Dyspnoea [None]
  - Respiratory arrest [None]
